FAERS Safety Report 5531957-3 (Version None)
Quarter: 2007Q4

REPORT INFORMATION
  Report Type: 
  Country: None (occurrence: None)
  Receive Date: 20071203
  Receipt Date: 20071126
  Transmission Date: 20080405
  Serious: Yes (Other)
  Sender: FDA-Public Use
  Company Number: US-ELI_LILLY_AND_COMPANY-US200710004430

PATIENT
  Age: 69 Year
  Sex: Male
  Weight: 74.83 kg

DRUGS (6)
  1. ALIMTA [Suspect]
     Indication: NON-SMALL CELL LUNG CANCER
     Dosage: 500 MG, UNK
     Dates: start: 20070919
  2. ALIMTA [Suspect]
     Dosage: 900 MG, UNK
     Dates: start: 20071010
  3. ALIMTA [Suspect]
     Dosage: 900 MG, OTHER
     Dates: start: 20071031
  4. FOLIC ACID [Concomitant]
     Dosage: 1 MG, DAILY (1/D)
     Route: 048
     Dates: start: 20070912
  5. VITAMIN B-12 [Concomitant]
     Dosage: 1000 UG, UNK
     Route: 030
     Dates: start: 20070912
  6. CORTICOSTEROID NOS [Concomitant]
     Dosage: 8 MG, OTHER
     Route: 048
     Dates: start: 20070912

REACTIONS (3)
  - HYPOTENSION [None]
  - PLATELET COUNT DECREASED [None]
  - WHITE BLOOD CELL COUNT DECREASED [None]
